FAERS Safety Report 11449347 (Version 1)
Quarter: 2015Q3

REPORT INFORMATION
  Report Type: Spontaneous
  Country: US (occurrence: US)
  Receive Date: 20150902
  Receipt Date: 20150902
  Transmission Date: 20151125
  Serious: Yes (Hospitalization)
  Sender: FDA-Public Use
  Company Number: US-TEVA-589977USA

PATIENT
  Age: 78 Year
  Sex: Male
  Weight: 80.18 kg

DRUGS (10)
  1. WARFARIN [Concomitant]
     Active Substance: WARFARIN
     Dosage: 3 MILLIGRAM DAILY;
     Route: 048
     Dates: start: 20141001
  2. POTASSIUM CHLORIDE. [Concomitant]
     Active Substance: POTASSIUM CHLORIDE
     Dosage: 40 MILLIEQUIVALENTS DAILY;
     Route: 048
     Dates: start: 20141230
  3. BUMETANIDE. [Suspect]
     Active Substance: BUMETANIDE
     Indication: DIURETIC THERAPY
     Dosage: 2 MILLIGRAM DAILY;
     Route: 048
     Dates: start: 20141101, end: 20150507
  4. ACETAMINOPHEN. [Concomitant]
     Active Substance: ACETAMINOPHEN
     Dosage: AS NEEDED
     Route: 048
     Dates: start: 20130701
  5. PREDNISOLONE. [Concomitant]
     Active Substance: PREDNISOLONE
     Dosage: 1 DROP IN RIGHT EYE
     Route: 047
     Dates: start: 20150421
  6. PREDNISOLONE. [Concomitant]
     Active Substance: PREDNISOLONE
     Dosage: 1 DROP IN LEFT EYE
     Route: 047
     Dates: start: 20150407
  7. CALCIUM VITAMIN D3 [Concomitant]
     Dosage: 1 TABLET
     Route: 048
     Dates: start: 20101107
  8. OMEPRAZOLE. [Concomitant]
     Active Substance: OMEPRAZOLE
     Dosage: 20 MILLIGRAM DAILY;
     Route: 048
     Dates: start: 20150224
  9. TAFAMIDIS MEGLUMINE/PLACEBO (CODE NOT BROKEN) [Suspect]
     Active Substance: TAFAMIDIS MEGLUMINE
     Indication: CARDIOMYOPATHY
     Route: 065
  10. OXYMETAZOLINE [Concomitant]
     Active Substance: OXYMETAZOLINE
     Dosage: 2 SPRAYS
     Route: 045
     Dates: start: 20150324

REACTIONS (5)
  - Orthostatic intolerance [None]
  - Syncope [Recovered/Resolved]
  - Head injury [None]
  - Confusional state [None]
  - Tremor [None]

NARRATIVE: CASE EVENT DATE: 20150503
